FAERS Safety Report 5521990-X (Version None)
Quarter: 2007Q4

REPORT INFORMATION
  Report Type: 
  Country: None (occurrence: None)
  Receive Date: 20071120
  Receipt Date: 20070823
  Transmission Date: 20080405
  Serious: No
  Sender: FDA-Public Use
  Company Number: US-BRISTOL-MYERS SQUIBB COMPANY-13887237

PATIENT
  Age: 82 Year
  Sex: Female
  Weight: 58 kg

DRUGS (3)
  1. AVALIDE [Suspect]
     Indication: HYPERTENSION
     Dosage: DOSE INCREASED TO 300/25MG DAILY.
     Route: 048
     Dates: start: 20001201
  2. PROCARDIA XL [Concomitant]
  3. ATENOLOL [Concomitant]

REACTIONS (1)
  - BLOOD PRESSURE INCREASED [None]
